FAERS Safety Report 14490096 (Version 2)
Quarter: 2018Q1

REPORT INFORMATION
  Report Type: Report from Study
  Country: US (occurrence: US)
  Receive Date: 20180206
  Receipt Date: 20180320
  Transmission Date: 20180509
  Serious: Yes (Death)
  Sender: FDA-Public Use
  Company Number: US-ACADIA PHARMACEUTICALS INC.-ACA-2017-006895

PATIENT
  Age: 71 Year
  Sex: Female

DRUGS (1)
  1. NUPLAZID [Suspect]
     Active Substance: PIMAVANSERIN TARTRATE
     Indication: PARKINSON^S DISEASE
     Dosage: 34 MG, QD
     Route: 048
     Dates: start: 20161220, end: 20180105

REACTIONS (5)
  - Parkinson^s disease [Unknown]
  - Hallucination [Unknown]
  - Syncope [Fatal]
  - Delusion [Unknown]
  - Pulse absent [Fatal]

NARRATIVE: CASE EVENT DATE: 20171115
